FAERS Safety Report 13896064 (Version 1)
Quarter: 2017Q3

REPORT INFORMATION
  Report Type: Spontaneous
  Country: US (occurrence: US)
  Receive Date: 20170822
  Receipt Date: 20170822
  Transmission Date: 20171127
  Serious: Yes (Disabling)
  Sender: FDA-Public Use
  Company Number: None

PATIENT
  Age: 64 Year
  Sex: Female
  Weight: 81 kg

DRUGS (12)
  1. COENZYME Q10 [Concomitant]
     Active Substance: UBIDECARENONE
  2. ALA [Concomitant]
  3. N-ACETYL CYSTEINE [Concomitant]
  4. MEGA RED [Concomitant]
  5. PROBIOTICS [Concomitant]
     Active Substance: PROBIOTICS NOS
  6. ANTIBIOTICS FOR LYME PROBIOTICS [Concomitant]
  7. RALOXOPHENE [Concomitant]
  8. AMLODOPINE [Concomitant]
     Active Substance: AMLODIPINE BESYLATE
  9. SOLGAR VM-75 --VITAMINS + MINERALS [Concomitant]
  10. CLA [Concomitant]
  11. GADAVIST [Suspect]
     Active Substance: GADOBUTROL
     Indication: NUCLEAR MAGNETIC RESONANCE IMAGING
     Dosage: ?          QUANTITY:1 INJECTION(S);?INTRAVENOUS (NOT OTHERWISE SPECIFIED) ?
     Route: 042
     Dates: start: 20140401, end: 20170221
  12. THYROID [Concomitant]
     Active Substance: LEVOTHYROXINE\LIOTHYRONINE

REACTIONS (12)
  - Visual acuity reduced [None]
  - Blood heavy metal increased [None]
  - Skin disorder [None]
  - Ocular hyperaemia [None]
  - Oedema peripheral [None]
  - Dry eye [None]
  - Neck pain [None]
  - Pruritus [None]
  - Muscle twitching [None]
  - Contrast media reaction [None]
  - Paraesthesia [None]
  - Pain [None]

NARRATIVE: CASE EVENT DATE: 20170221
